FAERS Safety Report 19349104 (Version 1)
Quarter: 2021Q2

REPORT INFORMATION
  Report Type: Spontaneous
  Country: US (occurrence: US)
  Receive Date: 20210529
  Receipt Date: 20210529
  Transmission Date: 20210717
  Serious: Yes (Disabling)
  Sender: FDA-Public Use
  Company Number: None

PATIENT
  Age: 9 Year
  Sex: Male
  Weight: 32.85 kg

DRUGS (11)
  1. TRIAMCINOLONE [Suspect]
     Active Substance: TRIAMCINOLONE
     Indication: ECZEMA
     Dosage: ?          QUANTITY:453.6 KG;?
     Route: 061
     Dates: start: 20190724, end: 20210112
  2. BENADRYL [Concomitant]
     Active Substance: DIPHENHYDRAMINE HYDROCHLORIDE
  3. SKIN FRIEND AM/PM MULTIVITAMIN [Concomitant]
  4. ACETAMINOPHEN. [Concomitant]
     Active Substance: ACETAMINOPHEN
  5. VITAMIN C [Concomitant]
     Active Substance: ASCORBIC ACID
  6. DESONIDE. [Suspect]
     Active Substance: DESONIDE
     Indication: ECZEMA
     Dosage: ?          QUANTITY:60 GRAMS;?
     Route: 061
  7. VIT D3/K2 [Concomitant]
  8. MAGNESIUM [Concomitant]
     Active Substance: MAGNESIUM
  9. PROBIOTIC [Concomitant]
     Active Substance: PROBIOTICS NOS
  10. IONIC ZINC [Concomitant]
  11. IBUPROFEN. [Concomitant]
     Active Substance: IBUPROFEN

REACTIONS (19)
  - Pain [None]
  - Erythema [None]
  - Body temperature abnormal [None]
  - Steroid dependence [None]
  - Rebound effect [None]
  - Skin exfoliation [None]
  - Sensitive skin [None]
  - Skin burning sensation [None]
  - Skin hypertrophy [None]
  - Pruritus [None]
  - Lymphadenopathy [None]
  - Anxiety [None]
  - Steroid withdrawal syndrome [None]
  - Peripheral swelling [None]
  - Neuralgia [None]
  - Alopecia [None]
  - Insomnia [None]
  - Rash [None]
  - Skin weeping [None]

NARRATIVE: CASE EVENT DATE: 20210112
